FAERS Safety Report 25521905 (Version 4)
Quarter: 2025Q3

REPORT INFORMATION
  Report Type: Spontaneous
  Country: JP (occurrence: JP)
  Receive Date: 20250706
  Receipt Date: 20250812
  Transmission Date: 20251020
  Serious: Yes (Hospitalization, Other)
  Sender: GLAXOSMITHKLINE
  Company Number: JP-GSK-JP2025JPN081230

PATIENT
  Age: 92 Year
  Sex: Female

DRUGS (18)
  1. DAPRODUSTAT [Suspect]
     Active Substance: DAPRODUSTAT
     Indication: Nephrogenic anaemia
  2. DAPRODUSTAT [Suspect]
     Active Substance: DAPRODUSTAT
     Dosage: 2 MG, QD
  3. LEVOTHYROXINE [Concomitant]
     Active Substance: LEVOTHYROXINE
  4. PRAVASTATIN [Concomitant]
     Active Substance: PRAVASTATIN
  5. BISOPROLOL [Concomitant]
     Active Substance: BISOPROLOL
  6. ELDECALCITOL [Concomitant]
     Active Substance: ELDECALCITOL
  7. REXULTI [Concomitant]
     Active Substance: BREXPIPRAZOLE
  8. AMLODIPINE [Concomitant]
     Active Substance: AMLODIPINE BESYLATE
  9. ELOBIXIBAT [Concomitant]
     Active Substance: ELOBIXIBAT
  10. HERBALS [Concomitant]
     Active Substance: HERBALS
  11. Lagnos nf [Concomitant]
  12. ENTRESTO [Concomitant]
     Active Substance: SACUBITRIL\VALSARTAN
  13. CALCIUM ASPARTATE [Concomitant]
     Active Substance: CALCIUM ASPARTATE
  14. FERRIC CITRATE ANHYDROUS [Concomitant]
     Active Substance: FERRIC CITRATE ANHYDROUS
  15. RAMELTEON [Concomitant]
     Active Substance: RAMELTEON
  16. DAYVIGO [Concomitant]
     Active Substance: LEMBOREXANT
  17. RISPERDAL [Concomitant]
     Active Substance: RISPERIDONE
  18. CALONAL [Concomitant]
     Active Substance: ACETAMINOPHEN

REACTIONS (6)
  - Dementia [Unknown]
  - Neuropsychological symptoms [Unknown]
  - Restlessness [Unknown]
  - Agitation [Unknown]
  - Aggression [Unknown]
  - Haemoglobin increased [Recovered/Resolved]

NARRATIVE: CASE EVENT DATE: 20250630
